FAERS Safety Report 7179243-2 (Version None)
Quarter: 2010Q4

REPORT INFORMATION
  Report Type: 
  Country: None (occurrence: None)
  Receive Date: 20101221
  Receipt Date: 20101213
  Transmission Date: 20110411
  Serious: Yes (Death)
  Sender: FDA-Public Use
  Company Number: AU-JNJFOC-20100304227

PATIENT
  Age: 32 Year
  Sex: Female

DRUGS (8)
  1. TRAMADOL HYDROCHLORIDE [Suspect]
     Indication: ILL-DEFINED DISORDER
     Route: 065
  2. ACETAMINOPHEN [Interacting]
  3. ACETAMINOPHEN [Interacting]
     Indication: ILL-DEFINED DISORDER
  4. DOXEPIN HCL [Interacting]
     Indication: ILL-DEFINED DISORDER
  5. CODEINE [Interacting]
     Indication: ILL-DEFINED DISORDER
  6. TETRAHYDROCANNABINOL [Interacting]
     Indication: ILL-DEFINED DISORDER
  7. DIAZEPAM [Interacting]
     Indication: ILL-DEFINED DISORDER
  8. NAPROXEN [Interacting]
     Indication: ILL-DEFINED DISORDER

REACTIONS (3)
  - ACCIDENTAL OVERDOSE [None]
  - DRUG INTERACTION [None]
  - DRUG TOXICITY [None]
